FAERS Safety Report 4682798-0 (Version None)
Quarter: 2005Q2

REPORT INFORMATION
  Report Type: 
  Country: None (occurrence: None)
  Receive Date: 20050606
  Receipt Date: 20050531
  Transmission Date: 20051028
  Serious: No
  Sender: FDA-Public Use
  Company Number: 2005SE03210

PATIENT
  Age: 13288 Day
  Sex: Female

DRUGS (10)
  1. SEROQUEL [Suspect]
     Indication: MOOD SWINGS
     Route: 048
     Dates: start: 20041111, end: 20050513
  2. SEROQUEL [Suspect]
     Indication: EATING DISORDER
     Route: 048
     Dates: start: 20041111, end: 20050513
  3. SEROQUEL [Suspect]
     Dosage: LOWER DOSE
     Route: 048
     Dates: start: 20050517
  4. SEROQUEL [Suspect]
     Dosage: LOWER DOSE
     Route: 048
     Dates: start: 20050517
  5. LAMICTAL [Suspect]
     Indication: AFFECTIVE DISORDER
     Route: 048
     Dates: start: 20050314, end: 20050513
  6. KALCIPOS-D [Concomitant]
     Indication: OSTEOPENIA
     Route: 048
  7. MULTI-TABS [Concomitant]
     Indication: NUTRITIONAL SUPPORT
     Route: 048
  8. EFEXOR DEPOT [Concomitant]
     Indication: DEPRESSION
     Route: 048
     Dates: start: 20050225
  9. DUROFERON [Concomitant]
     Indication: ANAEMIA
     Route: 048
     Dates: start: 20050408
  10. MOVICOL [Concomitant]
     Indication: CONSTIPATION
     Route: 048
     Dates: start: 20050324

REACTIONS (2)
  - LEUKOPENIA [None]
  - NEUTROPENIA [None]
